FAERS Safety Report 6220357-9 (Version None)
Quarter: 2009Q2

REPORT INFORMATION
  Report Type: 
  Country: None (occurrence: None)
  Receive Date: 20090610
  Receipt Date: 20090514
  Transmission Date: 20091009
  Serious: Yes (Hospitalization)
  Sender: FDA-Public Use
  Company Number: IN-PFIZER INC-2008057041

PATIENT
  Age: 28 Year

DRUGS (9)
  1. BLINDED *PLACEBO [Suspect]
     Dosage: 37.5 MG, 1X/DAY
     Route: 048
     Dates: start: 20080528
  2. BLINDED SUNITINIB MALATE [Suspect]
     Dosage: 37.5 MG, 1X/DAY
     Route: 048
     Dates: start: 20080528
  3. IRINOTECAN HYDROCHLORIDE [Suspect]
     Indication: COLORECTAL CANCER METASTATIC
     Dosage: 180 MG/M2, EVERY 15 DAYS
     Route: 042
     Dates: start: 20080528
  4. LEUCOVORIN CALCIUM [Suspect]
     Indication: COLORECTAL CANCER METASTATIC
     Dosage: 200 MG/M2, EVERY 15 DAYS
     Route: 042
     Dates: start: 20080528
  5. FLUOROURACIL [Suspect]
     Indication: COLORECTAL CANCER METASTATIC
     Dosage: 400 MG/M2, EVERY 15 DAYS
     Route: 040
     Dates: start: 20080529, end: 20080801
  6. FLUOROURACIL [Suspect]
     Dosage: 2400 MG/M2, EVERY 15 DAYS
     Route: 041
     Dates: start: 20080529, end: 20080801
  7. DOMPERIDONE/PANTOPRAZOLE [Concomitant]
     Route: 048
     Dates: start: 20080528
  8. CYPROHEPTADINE HCL [Concomitant]
     Route: 048
     Dates: start: 20080528
  9. ONDANSETRON [Concomitant]
     Route: 048
     Dates: start: 20080702

REACTIONS (7)
  - ABDOMINAL PAIN [None]
  - ANOREXIA [None]
  - DIARRHOEA [None]
  - DIZZINESS [None]
  - HYPOTENSION [None]
  - NAUSEA [None]
  - VOMITING [None]
